FAERS Safety Report 7111168-0 (Version None)
Quarter: 2010Q4

REPORT INFORMATION
  Report Type: 
  Country: None (occurrence: None)
  Receive Date: 20101118
  Receipt Date: 20091202
  Transmission Date: 20110411
  Serious: No
  Sender: FDA-Public Use
  Company Number: US-TEVA-216837USA

PATIENT
  Sex: Female
  Weight: 63.56 kg

DRUGS (2)
  1. ALBUTEROL SULFATE AUTOHALER [Suspect]
     Indication: ASTHMA
     Dosage: 4-6 TIMES A DAY
     Route: 055
     Dates: start: 20090801
  2. PREDNISONE [Concomitant]
     Indication: ASTHMA
     Route: 048

REACTIONS (2)
  - ASTHMA [None]
  - DRUG INEFFECTIVE [None]
